FAERS Safety Report 6924366-3 (Version None)
Quarter: 2010Q3

REPORT INFORMATION
  Report Type: 
  Country: None (occurrence: None)
  Receive Date: 20100811
  Receipt Date: 20100811
  Transmission Date: 20110219
  Serious: No
  Sender: FDA-Public Use
  Company Number: None

PATIENT
  Age: 20 Year
  Sex: Female
  Weight: 73.0291 kg

DRUGS (1)
  1. MINOCYCLINE HCL [Suspect]
     Indication: ACNE
     Dosage: 100MG PO DAILY
     Route: 048
     Dates: start: 20080409, end: 20080415

REACTIONS (2)
  - PHOTOSENSITIVITY REACTION [None]
  - RASH [None]
